FAERS Safety Report 4390150-0 (Version None)
Quarter: 2004Q3

REPORT INFORMATION
  Report Type: 
  Country: None (occurrence: None)
  Receive Date: 20040706
  Receipt Date: 20040629
  Transmission Date: 20050211
  Serious: Yes (Hospitalization)
  Sender: FDA-Public Use
  Company Number: US-GLAXOSMITHKLINE-A0516596A

PATIENT
  Age: 57 Year
  Sex: Male

DRUGS (5)
  1. AVANDIA [Suspect]
     Indication: DIABETES MELLITUS NON-INSULIN-DEPENDENT
     Dosage: 8MG PER DAY
     Route: 048
     Dates: start: 20000825, end: 20010501
  2. LASIX [Concomitant]
  3. GEMFIBROZIL [Concomitant]
  4. LISINOPRIL [Concomitant]
  5. TIMOLOL MALEATE [Concomitant]

REACTIONS (9)
  - ASTHENIA [None]
  - LYMPHADENOPATHY [None]
  - OEDEMA PERIPHERAL [None]
  - PERICARDIAL EFFUSION [None]
  - PERICARDITIS CONSTRICTIVE [None]
  - PLEURAL EFFUSION [None]
  - RESPIRATORY DISTRESS [None]
  - WEIGHT INCREASED [None]
  - WHEEZING [None]
